FAERS Safety Report 17438883 (Version 1)
Quarter: 2020Q1

REPORT INFORMATION
  Report Type: Spontaneous
  Country: DE (occurrence: DE)
  Receive Date: 20200220
  Receipt Date: 20200220
  Transmission Date: 20200409
  Serious: Yes (Hospitalization)
  Sender: FDA-Public Use
  Company Number: DE-TEVA-2020-DE-1188786

PATIENT
  Age: 67 Year
  Sex: Male

DRUGS (13)
  1. ATROVENT [Concomitant]
     Active Substance: IPRATROPIUM BROMIDE
     Dosage: NK MG, NK
  2. LEVOTHYROXIN-NATRIUM [Concomitant]
     Active Substance: LEVOTHYROXINE SODIUM
     Dosage: 100 MICROGRAM DAILY; 100 MCG, 1-0-0-0
  3. PREDNISOLONE. [Suspect]
     Active Substance: PREDNISOLONE
     Dosage: 40 MILLIGRAM DAILY; 40 MG, 0-1-0-0
     Route: 065
  4. RAMIPRIL. [Concomitant]
     Active Substance: RAMIPRIL
     Dosage: 5 MG, 0.5-0-0.5-0
  5. COLECALCIFEROL (VITAMIN D) [Concomitant]
     Dosage: 1 DOSAGE FORMS DAILY; NK MG, 1-0-0-0
  6. PANTOPRAZOL [Concomitant]
     Active Substance: PANTOPRAZOLE SODIUM
     Dosage: 40 MILLIGRAM DAILY; 40 MG, 1-0-0-0
  7. PROCORALAN 5MG [Concomitant]
     Dosage: 10 MILLIGRAM DAILY; 5 MG, 1-0-1-0
  8. DAXAS [Concomitant]
     Active Substance: ROFLUMILAST
     Dosage: 500 MILLIGRAM DAILY; 500 MG, 1-0-0-0
  9. XIPAMID [Concomitant]
     Active Substance: XIPAMIDE
     Dosage: 20 MILLIGRAM DAILY; 20 MG, 1-0-0-0
  10. SALBUTAMOL [Concomitant]
     Active Substance: ALBUTEROL
     Dosage: NK MG, NK
  11. ULTIBRO [Concomitant]
     Active Substance: GLYCOPYRRONIUM\INDACATEROL
     Dosage: NK MG, NK
  12. VERAPAMIL [Concomitant]
     Active Substance: VERAPAMIL HYDROCHLORIDE
     Dosage: 240 MILLIGRAM DAILY; 120 MG, 1-0-1-0
  13. RIVAROXABAN [Suspect]
     Active Substance: RIVAROXABAN
     Dosage: 20 MILLIGRAM DAILY; 20 MG, 1-0-0-0
     Route: 065

REACTIONS (7)
  - Chronic obstructive pulmonary disease [Unknown]
  - Pallor [Unknown]
  - Condition aggravated [Unknown]
  - Dyspnoea exertional [Unknown]
  - General physical health deterioration [Unknown]
  - Anaemia [Unknown]
  - Dyspnoea [Unknown]
